FAERS Safety Report 6995600 (Version 4)
Quarter: 2013Q3

REPORT INFORMATION
  Report Type: Report from Study
  Country: US (occurrence: US)
  Receive Date: 20090515
  Receipt Date: 20130705
  Transmission Date: 20140515
  Serious: Yes (Death, Hospitalization, Other)
  Sender: FDA-Public Use
  Company Number: US-JNJFOC-20090205497

PATIENT
  Age: 51 Year
  Sex: Male
  Weight: 83.46 kg

DRUGS (2)
  1. INFLIXIMAB [Suspect]
     Indication: PSORIASIS
     Route: 042
     Dates: start: 20071201
  2. INFLIXIMAB [Suspect]
     Indication: PSORIASIS
     Dosage: 7 INFUSIONS ON UNKNOWN DATES
     Route: 042

REACTIONS (3)
  - Sepsis [Fatal]
  - Chronic hepatitis C [Fatal]
  - Renal failure acute [Fatal]
